FAERS Safety Report 24375204 (Version 1)
Quarter: 2024Q3

REPORT INFORMATION
  Report Type: Spontaneous
  Country: CA (occurrence: CA)
  Receive Date: 20240928
  Receipt Date: 20240928
  Transmission Date: 20241016
  Serious: Yes (Hospitalization)
  Sender: TEVA
  Company Number: CA-TEVA-VS-3245863

PATIENT
  Age: 38 Year
  Sex: Male

DRUGS (1)
  1. ACYCLOVIR [Suspect]
     Active Substance: ACYCLOVIR
     Indication: Wrong patient received product
     Route: 042

REACTIONS (3)
  - Agitation [Recovering/Resolving]
  - Wrong patient received product [Recovering/Resolving]
  - Endotracheal intubation [Recovering/Resolving]
